FAERS Safety Report 12657679 (Version 1)
Quarter: 2016Q3

REPORT INFORMATION
  Report Type: Spontaneous
  Country: US (occurrence: US)
  Receive Date: 20160816
  Receipt Date: 20160816
  Transmission Date: 20161109
  Serious: Yes (Hospitalization)
  Sender: FDA-Public Use
  Company Number: US-ASTRAZENECA-2016SE87319

PATIENT
  Age: 11 Year
  Sex: Female
  Weight: 47.6 kg

DRUGS (2)
  1. MERREM IV [Suspect]
     Active Substance: MEROPENEM
     Indication: CYSTIC FIBROSIS
     Route: 042
     Dates: start: 2010, end: 2010
  2. MERREM IV [Suspect]
     Active Substance: MEROPENEM
     Indication: CYSTIC FIBROSIS
     Route: 042
     Dates: start: 2012, end: 2012

REACTIONS (3)
  - Off label use [Recovered/Resolved]
  - Rash [Unknown]
  - Serum sickness [Unknown]

NARRATIVE: CASE EVENT DATE: 2010
